FAERS Safety Report 5614931-8 (Version None)
Quarter: 2008Q1

REPORT INFORMATION
  Report Type: 
  Country: None (occurrence: None)
  Receive Date: 20080206
  Receipt Date: 20071101
  Transmission Date: 20080703
  Serious: No
  Sender: FDA-Public Use
  Company Number: US-BAYER-US-2007-041309

PATIENT
  Age: 27 Year
  Sex: Female
  Weight: 93 kg

DRUGS (2)
  1. MIRENA [Suspect]
     Indication: CONTRACEPTION
     Route: 015
     Dates: start: 20070430, end: 20071025
  2. LEXAPRO [Concomitant]
     Indication: POSTPARTUM DEPRESSION

REACTIONS (1)
  - ABDOMINAL PAIN [None]
